FAERS Safety Report 23936511 (Version 1)
Quarter: 2024Q2

REPORT INFORMATION
  Report Type: Spontaneous
  Country: BR (occurrence: BR)
  Receive Date: 20240604
  Receipt Date: 20240604
  Transmission Date: 20240716
  Serious: Yes (Other)
  Sender: FDA-Public Use
  Company Number: BR-BAYER-2024A080746

PATIENT
  Sex: Female

DRUGS (1)
  1. ULTRAVIST [Suspect]
     Active Substance: IOPROMIDE
     Indication: Computerised tomogram abdomen
     Dosage: 80 ML, ONCE
     Dates: start: 20240502, end: 20240502

REACTIONS (5)
  - Periorbital oedema [None]
  - Nausea [None]
  - Tachycardia [None]
  - Hyperaemia [None]
  - Laryngeal oedema [None]

NARRATIVE: CASE EVENT DATE: 20240502
